APPROVED DRUG PRODUCT: CEPHALEXIN
Active Ingredient: CEPHALEXIN
Strength: EQ 500MG BASE
Dosage Form/Route: CAPSULE;ORAL
Application: A063186 | Product #002
Applicant: APOTHECON INC DIV BRISTOL MYERS SQUIBB
Approved: Dec 30, 1994 | RLD: No | RS: No | Type: DISCN